FAERS Safety Report 16343997 (Version 1)
Quarter: 2019Q2

REPORT INFORMATION
  Report Type: Spontaneous
  Country: NL (occurrence: NL)
  Receive Date: 20190522
  Receipt Date: 20190522
  Transmission Date: 20190711
  Serious: Yes (Other)
  Sender: FDA-Public Use
  Company Number: NL-ANIPHARMA-2019-NL-000025

PATIENT
  Age: 79 Year
  Sex: Male

DRUGS (23)
  1. BICALUTAMIDE. [Suspect]
     Active Substance: BICALUTAMIDE
     Indication: PRODUCT USED FOR UNKNOWN INDICATION
     Dosage: UNKNOWN
     Route: 048
  2. ESOMEPRAZOLE. [Concomitant]
     Active Substance: ESOMEPRAZOLE MAGNESIUM
     Dosage: 40 MG DAILY
     Route: 065
  3. COLCHICINE. [Concomitant]
     Active Substance: COLCHICINE
     Dosage: 0.5 MG, ONCE DAILY
     Route: 065
  4. THEOPHYLLIN - SLOW RELEASE ^HEUMANN^ [Concomitant]
     Dosage: 350 UNSPECIFIED UNIT ONCE DAILY
     Route: 065
  5. ZESTRIL [Concomitant]
     Active Substance: LISINOPRIL
     Dosage: 20 MG Q12H
     Route: 065
  6. FLUIMICIL [Concomitant]
     Active Substance: ACETYLCYSTEINE
     Dosage: 1 ML Q8H
     Route: 065
  7. TRAMADOL. [Concomitant]
     Active Substance: TRAMADOL
     Dosage: 50 MG DAILY
     Route: 065
  8. ALLOPURINOL. [Concomitant]
     Active Substance: ALLOPURINOL
     Dosage: 100 MG DAILY
     Route: 065
  9. PREDNISON GALEPHARM [Concomitant]
     Active Substance: PREDNISONE
     Dosage: 30 MG INT
     Route: 065
  10. SALBUTAMOL [Concomitant]
     Active Substance: ALBUTEROL
     Dosage: 5 MG/ML THRICE DAILY
     Route: 055
  11. OXAZEPAM. [Concomitant]
     Active Substance: OXAZEPAM
     Dosage: 10 MG, ONCE 1/4
     Route: 065
  12. NITROGLYCERIN. [Concomitant]
     Active Substance: NITROGLYCERIN
     Dosage: 0.4 MG, AS NEEDED
     Route: 065
  13. ELIGARD [Suspect]
     Active Substance: LEUPROLIDE ACETATE
     Dosage: 45 MG, EVERY 6 MONTHS
     Route: 058
     Dates: start: 20190415
  14. SALBUTAMOL [Concomitant]
     Active Substance: ALBUTEROL
     Dosage: 400 UNSPECIFIED UNIT , AS NEEDED
     Route: 065
  15. ATROVENT [Concomitant]
     Active Substance: IPRATROPIUM BROMIDE
     Dosage: 500UG/2 ML, THRICE DAILY
     Route: 065
  16. FORMOTEROL [Concomitant]
     Active Substance: FORMOTEROL
     Dosage: 12 UG/INHAL DAILY
     Route: 055
  17. FUROSEMIDE. [Concomitant]
     Active Substance: FUROSEMIDE
     Dosage: 20 MG Q12H
     Route: 065
  18. ACENOCOUMAROL [Concomitant]
     Active Substance: ACENOCOUMAROL
     Dosage: 1 MG, ACCORDING TO SCHEDULE
     Route: 065
  19. SELOKEEN [Concomitant]
     Active Substance: METOPROLOL
     Dosage: 100 MG Q12H
     Route: 065
  20. PULMICORT TURBUHALER [Concomitant]
     Active Substance: BUDESONIDE
     Dosage: UNK
     Route: 065
  21. ATORVASTATIN [Concomitant]
     Active Substance: ATORVASTATIN
     Dosage: 10 MG DAILY
     Route: 065
  22. LANOXIN [Concomitant]
     Active Substance: DIGOXIN
     Dosage: 0.0625 MG, ONCE DAILY
     Route: 065
  23. AMLODIPINE [Concomitant]
     Active Substance: AMLODIPINE BESYLATE
     Dosage: 5 MG Q12H
     Route: 065

REACTIONS (5)
  - Nasal congestion [Unknown]
  - Fluid retention [Unknown]
  - Ocular discomfort [Unknown]
  - Dry mouth [Unknown]
  - Arrhythmia [Unknown]

NARRATIVE: CASE EVENT DATE: 20190415
